FAERS Safety Report 19097719 (Version 4)
Quarter: 2021Q3

REPORT INFORMATION
  Report Type: Spontaneous
  Country: AT (occurrence: AT)
  Receive Date: 20210406
  Receipt Date: 20210726
  Transmission Date: 20211014
  Serious: Yes (Hospitalization, Other)
  Sender: FDA-Public Use
  Company Number: AT-SA-2021SA111058

PATIENT
  Age: 65 Year
  Sex: Female

DRUGS (6)
  1. DUPIXENT [Suspect]
     Active Substance: DUPILUMAB
     Indication: ASTHMA
     Dosage: 300 MG, QOW
     Route: 058
     Dates: start: 20210218, end: 20210304
  2. BERODUAL [Concomitant]
     Active Substance: FENOTEROL HYDROBROMIDE\IPRATROPIUM BROMIDE
     Dosage: 0.5 DF, QD
  3. TRIMBOW [Concomitant]
     Active Substance: BECLOMETHASONE DIPROPIONATE\FORMOTEROL FUMARATE\GLYCOPYRROLATE
     Dosage: 1 DF, QD
  4. DUPIXENT [Suspect]
     Active Substance: DUPILUMAB
     Indication: CHRONIC RHINOSINUSITIS WITH NASAL POLYPS
  5. BERODUAL [Concomitant]
     Active Substance: FENOTEROL HYDROBROMIDE\IPRATROPIUM BROMIDE
     Dosage: 1 DF, QD
  6. DUPIXENT [Suspect]
     Active Substance: DUPILUMAB
     Indication: PARANASAL SINUS INFLAMMATION

REACTIONS (18)
  - Trismus [Unknown]
  - Pruritus [Unknown]
  - Illness [Unknown]
  - Off label use [Unknown]
  - Arthralgia [Unknown]
  - Injection site erythema [Unknown]
  - Pyrexia [Recovered/Resolved]
  - Pain [Unknown]
  - Spinal pain [Unknown]
  - Neuropathy peripheral [Unknown]
  - Staphylococcal sepsis [Unknown]
  - Headache [Unknown]
  - Muscular weakness [Unknown]
  - Asthma [Unknown]
  - Drug interaction [Unknown]
  - Erythema [Unknown]
  - Joint warmth [Unknown]
  - Hypersensitivity [Recovered/Resolved]

NARRATIVE: CASE EVENT DATE: 2021
